FAERS Safety Report 8322791-X (Version None)
Quarter: 2012Q2

REPORT INFORMATION
  Report Type: 
  Country: None (occurrence: None)
  Receive Date: 20120430
  Receipt Date: 20120419
  Transmission Date: 20120825
  Serious: Yes (Hospitalization, Disabling, Other)
  Sender: FDA-Public Use
  Company Number: BR-ASTRAZENECA-2012SE26431

PATIENT
  Age: 69 Year
  Sex: Female
  Weight: 63 kg

DRUGS (10)
  1. ATACAND [Suspect]
     Indication: HYPERTENSION
     Route: 048
     Dates: start: 20070101, end: 20120401
  2. ONGLYZA [Suspect]
     Indication: TYPE 2 DIABETES MELLITUS
     Route: 048
     Dates: start: 20120101
  3. SOMALGIN CARDIO [Concomitant]
     Route: 048
     Dates: start: 20110601
  4. ASPIRIN [Concomitant]
     Route: 048
     Dates: start: 20101201
  5. UNKNOWN [Suspect]
     Indication: TYPE 2 DIABETES MELLITUS
     Route: 048
     Dates: end: 20120101
  6. ATENOLOL [Suspect]
     Route: 048
     Dates: start: 20060101, end: 20120301
  7. ATENOLOL [Suspect]
     Route: 048
     Dates: start: 20120301
  8. ATORVASTATIN CALCIUM [Concomitant]
     Route: 048
     Dates: start: 20060101
  9. RASILEZ [Suspect]
     Dosage: 0.5 DF
     Route: 048
     Dates: start: 20100101, end: 20120401
  10. METFORMIN HCL [Concomitant]
     Route: 048

REACTIONS (8)
  - URINARY RETENTION [None]
  - ARTERIAL OCCLUSIVE DISEASE [None]
  - HEART RATE DECREASED [None]
  - OEDEMA PERIPHERAL [None]
  - DIZZINESS [None]
  - CEREBROVASCULAR ACCIDENT [None]
  - WEIGHT INCREASED [None]
  - BLOOD PRESSURE INCREASED [None]
